FAERS Safety Report 7439162-0 (Version None)
Quarter: 2011Q2

REPORT INFORMATION
  Report Type: 
  Country: None (occurrence: None)
  Receive Date: 20110427
  Receipt Date: 20110414
  Transmission Date: 20111010
  Serious: Yes (Hospitalization, Other)
  Sender: FDA-Public Use
  Company Number: GB-RANBAXY-2011RR-42900

PATIENT
  Age: 83 Year
  Sex: Female

DRUGS (3)
  1. AMOXICILLIN AND CLAVULANATE POTASSIUM [Concomitant]
     Indication: PNEUMONIA
     Route: 065
  2. CLARITHROMYCIN [Suspect]
     Indication: PNEUMONIA
     Dosage: UNK
     Route: 065
  3. SIMVASTATIN [Suspect]
     Indication: HYPERLIPIDAEMIA
     Route: 048

REACTIONS (8)
  - MYALGIA [None]
  - HYPERCALCAEMIA [None]
  - RHABDOMYOLYSIS [None]
  - MUSCULAR WEAKNESS [None]
  - MYOPATHY [None]
  - BLOOD CREATINE PHOSPHOKINASE INCREASED [None]
  - DEHYDRATION [None]
  - DRUG INTERACTION [None]
